FAERS Safety Report 17511736 (Version 1)
Quarter: 2020Q1

REPORT INFORMATION
  Report Type: Report from Study
  Country: ES (occurrence: ES)
  Receive Date: 20200306
  Receipt Date: 20200306
  Transmission Date: 20200409
  Serious: Yes (Other)
  Sender: FDA-Public Use
  Company Number: ES-VERTEX PHARMACEUTICALS-2020-004186

PATIENT
  Age: 32 Year
  Sex: Female
  Weight: 62 kg

DRUGS (7)
  1. KALYDECO [Suspect]
     Active Substance: IVACAFTOR
     Indication: CYSTIC FIBROSIS
     Dosage: 1 TABLET IN EVENING
     Route: 048
     Dates: start: 20191219
  2. PULMOZYME [Concomitant]
     Active Substance: DORNASE ALFA
  3. AZITHROMYCIN ANHYDROUS. [Concomitant]
     Active Substance: AZITHROMYCIN ANHYDROUS
  4. BRAMITOB [Concomitant]
     Active Substance: TOBRAMYCIN
  5. KREON [Concomitant]
     Active Substance: PANCRELIPASE
  6. ELEXACAFTOR/TEZACAFTOR/IVACAFTOR [Suspect]
     Active Substance: ELEXACAFTOR\IVACAFTOR\TEZACAFTOR
     Indication: CYSTIC FIBROSIS
     Dosage: 2 TABLETS IN MORNING
     Route: 048
     Dates: start: 20191219
  7. CAYSTON [Concomitant]
     Active Substance: AZTREONAM

REACTIONS (7)
  - Suicidal ideation [Unknown]
  - Delirium [Unknown]
  - Aggression [Unknown]
  - Anxiety [Unknown]
  - Anger [Unknown]
  - Psychotic symptom [Unknown]
  - Infective pulmonary exacerbation of cystic fibrosis [Recovered/Resolved]

NARRATIVE: CASE EVENT DATE: 202002
